FAERS Safety Report 11634839 (Version 1)
Quarter: 2015Q4

REPORT INFORMATION
  Report Type: Spontaneous
  Country: US (occurrence: US)
  Receive Date: 20151015
  Receipt Date: 20151015
  Transmission Date: 20160304
  Serious: Yes (Death)
  Sender: FDA-Public Use
  Company Number: US-CELGENE-USA-2015102266

PATIENT
  Age: 62 Year
  Sex: Female

DRUGS (3)
  1. REVLIMID [Suspect]
     Active Substance: LENALIDOMIDE
     Indication: PLASMA CELL MYELOMA
     Route: 048
     Dates: start: 200711
  2. REVLIMID [Suspect]
     Active Substance: LENALIDOMIDE
     Dosage: 5 - 10MG
     Route: 048
     Dates: start: 200804
  3. REVLIMID [Suspect]
     Active Substance: LENALIDOMIDE
     Route: 048
     Dates: start: 20150911

REACTIONS (1)
  - Death [Fatal]

NARRATIVE: CASE EVENT DATE: 20151004
